FAERS Safety Report 10089263 (Version 1)
Quarter: 2014Q2

REPORT INFORMATION
  Report Type: Spontaneous
  Country: GB (occurrence: None)
  Receive Date: 20140417
  Receipt Date: 20140417
  Transmission Date: 20141212
  Serious: Yes (Death, Other)
  Sender: FDA-Public Use
  Company Number: FK201401334

PATIENT
  Age: 50 Year
  Sex: Male
  Weight: 110 kg

DRUGS (4)
  1. IRINOTECAN (MANUFACTURER UNKNOWN) (IRINOTECAN) (IRINOTECAN) [Suspect]
     Indication: COLON CANCER METASTATIC
     Route: 042
     Dates: start: 20130812, end: 20130812
  2. FLUOROURACIL (FLUOROURACIL)(FLUOROURACIL) [Suspect]
     Indication: COLON CANCER METASTATIC
     Dates: start: 20130812, end: 20130812
  3. FOLINIC ACID (FOLINIC ACID) (FOLINIC ACID) [Suspect]
     Indication: COLON CANCER METASTATIC
     Route: 042
     Dates: start: 20130812, end: 20130812
  4. AFLIBERCEPT [Suspect]
     Indication: COLON CANCER METASTATIC
     Dosage: 1 IN 1 CYCLICAL
     Route: 042
     Dates: start: 20130812, end: 20130812

REACTIONS (3)
  - Malignant neoplasm progression [None]
  - Colon cancer metastatic [None]
  - Abdominal pain [None]
